FAERS Safety Report 4933752-2 (Version None)
Quarter: 2006Q1

REPORT INFORMATION
  Report Type: 
  Country: None (occurrence: None)
  Receive Date: 20060306
  Receipt Date: 20050504
  Transmission Date: 20060701
  Serious: Yes (Hospitalization, Disabling)
  Sender: FDA-Public Use
  Company Number: US-MERCK-0505USA00607

PATIENT
  Age: 54 Year
  Sex: Female
  Weight: 91 kg

DRUGS (10)
  1. VIOXX [Suspect]
     Indication: ARTHRITIS
     Route: 048
     Dates: start: 20010201, end: 20040201
  2. VIOXX [Suspect]
     Indication: BACK PAIN
     Route: 048
     Dates: start: 20010201, end: 20040201
  3. ACETAMINOPHEN [Concomitant]
     Indication: PAIN
     Route: 065
  4. LITHIUM-ASPARTAT [Concomitant]
     Route: 048
  5. PLAVIX [Concomitant]
     Route: 048
  6. WELLBUTRIN [Concomitant]
     Route: 048
  7. NEURONTIN [Concomitant]
     Route: 065
  8. NEURONTIN [Concomitant]
     Route: 065
  9. CALCIUM (UNSPECIFIED) [Concomitant]
     Route: 065
  10. VITAMINS (UNSPECIFIED) [Concomitant]
     Route: 065

REACTIONS (38)
  - AMNESIA [None]
  - ANGINA PECTORIS [None]
  - ANGIOPATHY [None]
  - ANXIETY DISORDER [None]
  - ARTERIAL INSUFFICIENCY [None]
  - BIPOLAR DISORDER [None]
  - BREAST DISORDER [None]
  - BRONCHITIS [None]
  - BURSITIS [None]
  - CALCINOSIS [None]
  - CALCULUS URETERIC [None]
  - CARDIOMEGALY [None]
  - CEREBRAL INFARCTION [None]
  - CEREBROVASCULAR ACCIDENT [None]
  - CERVICAL CYST [None]
  - CHEST PAIN [None]
  - CYST [None]
  - DIVERTICULUM [None]
  - DIZZINESS [None]
  - GASTROOESOPHAGEAL REFLUX DISEASE [None]
  - HYPERKALAEMIA [None]
  - HYPERTENSIVE HEART DISEASE [None]
  - IRRITABLE BOWEL SYNDROME [None]
  - ISCHAEMIC STROKE [None]
  - MELANOCYTIC NAEVUS [None]
  - MIGRAINE [None]
  - NEUROPATHY [None]
  - NEUROPATHY PERIPHERAL [None]
  - OSTEOARTHRITIS [None]
  - PAIN IN EXTREMITY [None]
  - PERIODONTAL DISEASE [None]
  - PHLEBOLITH [None]
  - PLEURAL EFFUSION [None]
  - RESPIRATORY TRACT INFECTION [None]
  - UPPER RESPIRATORY TRACT INFECTION [None]
  - URINARY TRACT INFECTION [None]
  - UTERINE LEIOMYOMA [None]
  - WEIGHT INCREASED [None]
